FAERS Safety Report 7945457-4 (Version None)
Quarter: 2011Q4

REPORT INFORMATION
  Report Type: 
  Country: None (occurrence: None)
  Receive Date: 20111129
  Receipt Date: 20111114
  Transmission Date: 20120403
  Serious: Yes (Hospitalization, Other)
  Sender: FDA-Public Use
  Company Number: JP-CELGENEUS-087-50794-11113106

PATIENT
  Sex: Male
  Weight: 46 kg

DRUGS (12)
  1. MAGMITT [Concomitant]
     Route: 065
     Dates: start: 20110601
  2. VIDAZA [Suspect]
     Dosage: 100 MILLIGRAM
     Route: 041
     Dates: start: 20110608, end: 20110614
  3. RAMELTEON [Concomitant]
     Route: 065
     Dates: start: 20110608, end: 20110608
  4. MEROPENEM [Concomitant]
     Route: 065
     Dates: start: 20110617, end: 20110627
  5. LEVOFLOXACIN HYDRATE [Concomitant]
     Route: 065
     Dates: start: 20110609, end: 20110612
  6. SEFIROM [Concomitant]
     Indication: SEPSIS
     Route: 065
     Dates: start: 20110613, end: 20110617
  7. VANCOMYCIN [Concomitant]
     Indication: SEPSIS
     Route: 065
     Dates: start: 20110614, end: 20110621
  8. PRIMOBOLAN-DEPOT INJ [Concomitant]
     Route: 065
     Dates: start: 20110601
  9. ADONA [Concomitant]
     Route: 065
     Dates: start: 20110613, end: 20110613
  10. PRIMPERAN TAB [Concomitant]
     Route: 065
     Dates: start: 20110608, end: 20110614
  11. INDAPAMIDE [Concomitant]
     Route: 065
     Dates: start: 20110601
  12. GAMOFA D [Concomitant]
     Route: 065
     Dates: start: 20110601

REACTIONS (3)
  - SEPSIS [None]
  - C-REACTIVE PROTEIN INCREASED [None]
  - WHITE BLOOD CELL COUNT DECREASED [None]
